FAERS Safety Report 8311569-9 (Version None)
Quarter: 2012Q2

REPORT INFORMATION
  Report Type: 
  Country: None (occurrence: None)
  Receive Date: 20120425
  Receipt Date: 20120416
  Transmission Date: 20120825
  Serious: Yes (Disabling, Other)
  Sender: FDA-Public Use
  Company Number: US-MERCK-1107USA03585

PATIENT
  Age: 49 Year
  Sex: Female
  Weight: 44 kg

DRUGS (3)
  1. FOSAMAX [Suspect]
     Indication: OSTEOPENIA
     Route: 048
     Dates: start: 20060101, end: 20110201
  2. FOSAMAX PLUS D [Suspect]
     Indication: OSTEOPENIA
     Route: 048
     Dates: start: 20080401, end: 20080901
  3. FOSAMAX [Suspect]
     Route: 048
     Dates: start: 20090101, end: 20100501

REACTIONS (48)
  - DYSPNOEA [None]
  - CHEST PAIN [None]
  - ARTHRALGIA [None]
  - BACK PAIN [None]
  - ORAL DISORDER [None]
  - DENTAL CARIES [None]
  - GINGIVAL BLEEDING [None]
  - INCREASED TENDENCY TO BRUISE [None]
  - VASCULAR CALCIFICATION [None]
  - NASAL SEPTUM DEVIATION [None]
  - OSTEONECROSIS OF JAW [None]
  - ABSCESS [None]
  - FATIGUE [None]
  - VISION BLURRED [None]
  - TOOTH DISORDER [None]
  - JOINT SWELLING [None]
  - MIGRAINE [None]
  - ANXIETY [None]
  - BONE DISORDER [None]
  - FALL [None]
  - GINGIVAL DISORDER [None]
  - PERIODONTITIS [None]
  - PERIODONTAL DISEASE [None]
  - HYPOTENSION [None]
  - OSTEOMYELITIS [None]
  - CEREBROVASCULAR ACCIDENT [None]
  - ARTHRITIS [None]
  - OROPHARYNGEAL BLISTERING [None]
  - OSTEOPOROSIS [None]
  - IMPAIRED HEALING [None]
  - VISUAL ACUITY REDUCED [None]
  - PARANASAL CYST [None]
  - PAIN IN EXTREMITY [None]
  - ORAL CAVITY FISTULA [None]
  - ORAL INFECTION [None]
  - DIZZINESS [None]
  - EYE PAIN [None]
  - HEPATITIS A [None]
  - TEMPOROMANDIBULAR JOINT SYNDROME [None]
  - MUSCLE SPASMS [None]
  - NECK PAIN [None]
  - ABSCESS ORAL [None]
  - BREATH ODOUR [None]
  - DIPLOPIA [None]
  - DRUG HYPERSENSITIVITY [None]
  - CEREBRAL SMALL VESSEL ISCHAEMIC DISEASE [None]
  - WEIGHT DECREASED [None]
  - PALPITATIONS [None]
